FAERS Safety Report 5010751-6 (Version None)
Quarter: 2006Q2

REPORT INFORMATION
  Report Type: 
  Country: None (occurrence: None)
  Receive Date: 20060525
  Receipt Date: 20060511
  Transmission Date: 20061013
  Serious: Yes (Death, Hospitalization)
  Sender: FDA-Public Use
  Company Number: CH-JNJFOC-20060505048

PATIENT
  Age: 80 Year
  Sex: Female
  Weight: 31 kg

DRUGS (11)
  1. TRAMADOL HCL [Suspect]
     Indication: BACK PAIN
     Route: 048
  2. MOGADON [Suspect]
     Indication: DRUG USE FOR UNKNOWN INDICATION
     Route: 048
  3. HALDOL [Concomitant]
     Indication: RESTLESSNESS
     Route: 065
  4. SERESTA [Concomitant]
     Indication: RESTLESSNESS
     Route: 048
  5. DISTRANEURIN [Concomitant]
     Route: 048
  6. NEXIUM [Concomitant]
     Route: 048
  7. ATACAND [Concomitant]
     Indication: ESSENTIAL HYPERTENSION
     Route: 048
  8. ASPIRIN [Concomitant]
     Route: 048
  9. TAMOXIFEN [Concomitant]
     Indication: BREAST CANCER IN SITU
     Route: 048
  10. ACETAMINOPHEN [Concomitant]
     Indication: BACK PAIN
     Route: 048
  11. DURAGESIC-100 [Concomitant]
     Indication: BACK PAIN
     Route: 003

REACTIONS (14)
  - AGITATION [None]
  - ASPIRATION BRONCHIAL [None]
  - CONFUSIONAL STATE [None]
  - DIARRHOEA [None]
  - DRY MOUTH [None]
  - HYPERHIDROSIS [None]
  - HYPERTENSION [None]
  - INCREASED UPPER AIRWAY SECRETION [None]
  - MYOCLONUS [None]
  - PYREXIA [None]
  - RESPIRATORY FAILURE [None]
  - SEROTONIN SYNDROME [None]
  - SUPERINFECTION LUNG [None]
  - TACHYCARDIA [None]
